FAERS Safety Report 15827133 (Version 3)
Quarter: 2019Q1

REPORT INFORMATION
  Report Type: Spontaneous
  Country: US (occurrence: US)
  Receive Date: 20190115
  Receipt Date: 20190211
  Transmission Date: 20190417
  Serious: Yes (Hospitalization)
  Sender: FDA-Public Use
  Company Number: US-CELGENEUS-USA-20190102688

PATIENT
  Age: 69 Year
  Sex: Female
  Weight: 68.1 kg

DRUGS (2)
  1. REVLIMID [Suspect]
     Active Substance: LENALIDOMIDE
     Dosage: 10 MILLIGRAM
     Route: 048
     Dates: start: 201901
  2. REVLIMID [Suspect]
     Active Substance: LENALIDOMIDE
     Indication: PLASMA CELL MYELOMA
     Dosage: 25 MILLIGRAM
     Route: 048
     Dates: start: 20181001

REACTIONS (7)
  - Blood calcium decreased [Unknown]
  - Urine analysis abnormal [Unknown]
  - Abdominal discomfort [Unknown]
  - Muscle spasms [Unknown]
  - Plasma cell myeloma [Unknown]
  - Renal disorder [Recovered/Resolved]
  - Pneumothorax [Recovered/Resolved]

NARRATIVE: CASE EVENT DATE: 20181219
